FAERS Safety Report 16156490 (Version 1)
Quarter: 2019Q2

REPORT INFORMATION
  Report Type: Spontaneous
  Country: US (occurrence: US)
  Receive Date: 20190404
  Receipt Date: 20190404
  Transmission Date: 20190711
  Serious: Yes (Hospitalization, Other)
  Sender: FDA-Public Use
  Company Number: US-PROCTER_AND_GAMBLE-GS19033215

PATIENT
  Age: 32 Year
  Sex: Male

DRUGS (3)
  1. DEXTROMETHORPHAN [Suspect]
     Active Substance: DEXTROMETHORPHAN
     Route: 048
  2. OPIATES [Suspect]
     Active Substance: UNSPECIFIED INGREDIENT
  3. PHENCYCLIDINE [Suspect]
     Active Substance: PHENCYCLIDINE

REACTIONS (18)
  - Overdose [Unknown]
  - Blood chloride decreased [Unknown]
  - Aggression [Unknown]
  - Drug tolerance [Unknown]
  - Poisoning [Unknown]
  - Psychotic disorder [Unknown]
  - Incorrect product administration duration [Unknown]
  - Drug dependence [Unknown]
  - Hyperchloraemia [Unknown]
  - Substance use disorder [Unknown]
  - Intentional product use issue [Unknown]
  - Drug abuse [Unknown]
  - Blood chloride increased [Unknown]
  - Drug screen positive [Unknown]
  - Toxicity to various agents [Unknown]
  - Serotonin syndrome [Unknown]
  - Laboratory test interference [Unknown]
  - Anion gap decreased [Unknown]
